FAERS Safety Report 4615250-9 (Version None)
Quarter: 2005Q1

REPORT INFORMATION
  Report Type: 
  Country: None (occurrence: None)
  Receive Date: 20050317
  Receipt Date: 20050304
  Transmission Date: 20050727
  Serious: Yes (Other)
  Sender: FDA-Public Use
  Company Number: HQWYE395817FEB05

PATIENT
  Age: 28 Year
  Sex: Female

DRUGS (3)
  1. EFFEXOR XR [Suspect]
     Dosage: 300 MG 1X PER 1 DAY ORAL
     Route: 048
  2. EFFEXOR XR [Suspect]
     Dosage: 150 MG 1X PER 1 DAY ORAL
     Route: 048
     Dates: end: 20050201
  3. MULTIVITAMINS, PLAIN (MULTIVITAMINS, PLAIN), [Concomitant]

REACTIONS (8)
  - CHEST PAIN [None]
  - DRUG WITHDRAWAL SYNDROME [None]
  - DYSPNOEA [None]
  - FALL [None]
  - HYPOKALAEMIA [None]
  - MUSCLE SPASMS [None]
  - MUSCLE TWITCHING [None]
  - PARAESTHESIA [None]
